FAERS Safety Report 5370647-7 (Version None)
Quarter: 2007Q2

REPORT INFORMATION
  Report Type: 
  Country: None (occurrence: None)
  Receive Date: 20070626
  Receipt Date: 20070615
  Transmission Date: 20071010
  Serious: Yes (Life-Threatening, Hospitalization, Other)
  Sender: FDA-Public Use
  Company Number: CH-PURDUE-DEU_2007_0003358

PATIENT
  Age: 54 Year
  Sex: Female
  Weight: 60 kg

DRUGS (4)
  1. OXYCODONE HYDROCHLORIDE CR TABLETS [Suspect]
     Indication: PAIN
     Dosage: 20 MG, DAILY
     Route: 048
     Dates: start: 20070420, end: 20070426
  2. NAPROXEN [Concomitant]
  3. DAFALGAN [Concomitant]
  4. NEXIUM [Concomitant]

REACTIONS (5)
  - ACUTE ABDOMEN [None]
  - DIVERTICULAR PERFORATION [None]
  - DIVERTICULITIS [None]
  - DOUGLAS' ABSCESS [None]
  - ILEUS [None]
